FAERS Safety Report 5520362-1 (Version None)
Quarter: 2007Q4

REPORT INFORMATION
  Report Type: 
  Country: None (occurrence: None)
  Receive Date: 20071116
  Receipt Date: 20071116
  Transmission Date: 20080405
  Serious: Yes (Other)
  Sender: FDA-Public Use
  Company Number: None

PATIENT
  Age: 57 Year
  Sex: Female
  Weight: 45.8133 kg

DRUGS (4)
  1. MAXIPIME [Suspect]
     Indication: CYSTIC FIBROSIS
     Dosage: 2GM IV OVER 30-60 MIN Q12 HOURS IV
     Route: 042
     Dates: start: 20070927, end: 20071020
  2. MAXIPIME [Suspect]
     Indication: PSEUDOMONAS INFECTION
     Dosage: 2GM IV OVER 30-60 MIN Q12 HOURS IV
     Route: 042
     Dates: start: 20070927, end: 20071020
  3. VANCOMYCIN [Suspect]
     Indication: CYSTIC FIBROSIS
     Dosage: 1200 MG Q24 HOURS IV
     Route: 042
     Dates: start: 20070927, end: 20071020
  4. VANCOMYCIN [Suspect]
     Indication: STAPHYLOCOCCAL INFECTION
     Dosage: 1200 MG Q24 HOURS IV
     Route: 042
     Dates: start: 20070927, end: 20071020

REACTIONS (6)
  - ARTHRALGIA [None]
  - INFUSION RELATED REACTION [None]
  - MYALGIA [None]
  - PYREXIA [None]
  - SERUM SICKNESS [None]
  - SLUGGISHNESS [None]
